FAERS Safety Report 14929919 (Version 1)
Quarter: 2018Q2

REPORT INFORMATION
  Report Type: Spontaneous
  Country: ES (occurrence: ES)
  Receive Date: 20180523
  Receipt Date: 20180523
  Transmission Date: 20180711
  Serious: Yes (Hospitalization)
  Sender: FDA-Public Use
  Company Number: ES-TEVA-2018-ES-895819

PATIENT
  Age: 79 Year
  Sex: Male

DRUGS (9)
  1. FUROSEMIDA (1615A) [Concomitant]
     Active Substance: FUROSEMIDE
     Dosage: 40 MILLIGRAM DAILY;
     Route: 048
  2. ZEMPLAR 1 MICROGRAMO CAPSULAS BLANDAS, 28 C?PSULAS [Concomitant]
     Dosage: 1 MICROGRAM DAILY;
     Route: 048
  3. ZYLORIC 100 MG COMPRIMIDOS, 100 COMPRIMIDOS [Concomitant]
     Dosage: 100 MILLIGRAM DAILY;
     Route: 048
  4. EKLIRA GENUAIR 322 MICROGRAMOS POLVO PARA INHALACION , 1 INHALADOR DE [Concomitant]
     Route: 055
  5. SINTROM [Suspect]
     Active Substance: ACENOCOUMAROL
     Indication: ATRIAL FIBRILLATION
     Route: 048
     Dates: start: 2015
  6. ACFOL 5 MG COMPRIMIDOS , 28 COMPRIMIDOS [Concomitant]
     Dosage: 5 MILLIGRAM DAILY;
     Route: 048
  7. EMCONCOR 10 MG COMPRIMIDOS RECUBIERTOS CON PELICULA, 30 COMPRIMIDOS [Concomitant]
     Route: 048
  8. CIPROFLOXACINO (2049A) [Suspect]
     Active Substance: CIPROFLOXACIN
     Indication: URINARY TRACT INFECTION
     Route: 048
     Dates: start: 201803
  9. RAMIPRIL (2497A) [Concomitant]
     Active Substance: RAMIPRIL
     Route: 048

REACTIONS (1)
  - Abdominal wall haematoma [Recovered/Resolved]

NARRATIVE: CASE EVENT DATE: 20180313
